FAERS Safety Report 4785592-5 (Version None)
Quarter: 2005Q4

REPORT INFORMATION
  Report Type: 
  Country: None (occurrence: None)
  Receive Date: 20051003
  Receipt Date: 20050929
  Transmission Date: 20060501
  Serious: Yes (Hospitalization)
  Sender: FDA-Public Use
  Company Number: JP-GLAXOSMITHKLINE-B0395536A

PATIENT
  Age: 64 Year
  Sex: Male

DRUGS (3)
  1. ZEFIX [Suspect]
     Indication: HEPATITIS B
     Dosage: 100MG PER DAY
     Route: 048
     Dates: start: 20010416
  2. URSODIOL [Concomitant]
     Route: 048
  3. HEPSERA [Concomitant]
     Route: 048

REACTIONS (1)
  - LIVER DISORDER [None]
